FAERS Safety Report 8709880 (Version 3)
Quarter: 2013Q1

REPORT INFORMATION
  Report Type: Spontaneous
  Country: BR (occurrence: BR)
  Receive Date: 20120806
  Receipt Date: 20130319
  Transmission Date: 20140127
  Serious: Yes (Life-Threatening, Hospitalization, Other)
  Sender: FDA-Public Use
  Company Number: PHHY2012BR067415

PATIENT
  Age: 88 Year
  Sex: Female

DRUGS (2)
  1. FORASEQ [Suspect]
     Indication: DYSPNOEA
     Dosage: BID, ONE AT 9 AM AND ONE AT 9 PM
  2. FORASEQ [Suspect]
     Indication: LUNG DISORDER

REACTIONS (9)
  - Apparent death [Not Recovered/Not Resolved]
  - Coma [Not Recovered/Not Resolved]
  - Respiratory arrest [Not Recovered/Not Resolved]
  - Renal impairment [Not Recovered/Not Resolved]
  - Abasia [Unknown]
  - Dyspnoea [Unknown]
  - Oxygen saturation decreased [Not Recovered/Not Resolved]
  - Nasopharyngitis [Unknown]
  - Cough [Unknown]
